FAERS Safety Report 26046028 (Version 1)
Quarter: 2025Q4

REPORT INFORMATION
  Report Type: Spontaneous
  Country: US (occurrence: US)
  Receive Date: 20251114
  Receipt Date: 20251114
  Transmission Date: 20260118
  Serious: Yes (Other)
  Sender: BAYER HEALTHCARE LLC
  Company Number: US-BAYER-2025A148781

PATIENT
  Age: 49 Year
  Sex: Male

DRUGS (2)
  1. ALKA SELTZER PLUS SEVERE COLD AND FLU POWERFAST FIZZ [Suspect]
     Active Substance: ACETAMINOPHEN\CHLORPHENIRAMINE MALEATE\DEXTROMETHORPHAN HYDROBROMIDE\PHENYLEPHRINE HYDROCHLORIDE
     Dosage: 2 DF, 2 TABLETS
  2. ALKA-SELTZER PLUS SEVERE COLD POWERFAST FIZZ NIGHT [Concomitant]
     Active Substance: ASPIRIN\DEXTROMETHORPHAN HYDROBROMIDE\DOXYLAMINE SUCCINATE\PHENYLEPHRINE BITARTRATE
     Dosage: 2 DF, 2 TABLETS

REACTIONS (1)
  - Loss of consciousness [Recovering/Resolving]
